FAERS Safety Report 18247571 (Version 1)
Quarter: 2020Q3

REPORT INFORMATION
  Report Type: Spontaneous
  Country: CN (occurrence: CN)
  Receive Date: 20200909
  Receipt Date: 20200909
  Transmission Date: 20201103
  Serious: Yes (Other)
  Sender: FDA-Public Use
  Company Number: CN-PFIZER INC-2020344855

PATIENT
  Age: 20 Year
  Sex: Female

DRUGS (2)
  1. METHOTREXATE SODIUM. [Suspect]
     Active Substance: METHOTREXATE SODIUM
     Indication: ECTOPIC PREGNANCY
     Dosage: (THE FIRST TIME TREATMENT)
     Dates: start: 2020, end: 2020
  2. METHOTREXATE SODIUM. [Suspect]
     Active Substance: METHOTREXATE SODIUM
     Indication: ECTOPIC PREGNANCY
     Dosage: 75 MG, 1X/DAY
     Route: 030
     Dates: start: 20200810, end: 20200810

REACTIONS (14)
  - Gait disturbance [Unknown]
  - Drug ineffective for unapproved indication [Unknown]
  - Vomiting [Recovering/Resolving]
  - Renal impairment [Recovering/Resolving]
  - Oedema mucosal [Unknown]
  - White blood cell count increased [Unknown]
  - Folliculitis [Unknown]
  - Drug eruption [Unknown]
  - Peripheral swelling [Unknown]
  - Gastrointestinal disorder [Recovering/Resolving]
  - Rash [Unknown]
  - Nausea [Recovering/Resolving]
  - Mouth ulceration [Unknown]
  - Off label use [Unknown]

NARRATIVE: CASE EVENT DATE: 2020
